FAERS Safety Report 6297570-8 (Version None)
Quarter: 2009Q3

REPORT INFORMATION
  Report Type: 
  Country: None (occurrence: None)
  Receive Date: 20090805
  Receipt Date: 20090729
  Transmission Date: 20100115
  Serious: Yes (Hospitalization, Other)
  Sender: FDA-Public Use
  Company Number: GB-BRISTOL-MYERS SQUIBB COMPANY-14722375

PATIENT
  Age: 6 Decade
  Sex: Female

DRUGS (4)
  1. HYDREA [Suspect]
     Dosage: TAKEN APPROX 5 YEARS.
  2. AMLODIPINE [Concomitant]
     Indication: HYPERTENSION
  3. PERINDOPRIL [Concomitant]
     Indication: HYPERTENSION
  4. SIMVASTATIN [Concomitant]

REACTIONS (2)
  - MICROCYTOSIS [None]
  - RENAL TUBULAR DISORDER [None]
